FAERS Safety Report 14169097 (Version 1)
Quarter: 2017Q4

REPORT INFORMATION
  Report Type: Spontaneous
  Country: DE (occurrence: FR)
  Receive Date: 20171107
  Receipt Date: 20171107
  Transmission Date: 20180321
  Serious: Yes (Hospitalization)
  Sender: FDA-Public Use
  Company Number: FR-MERZ NORTH AMERICA, INC.-17MRZ-00334

PATIENT
  Age: 61 Year
  Sex: Male

DRUGS (13)
  1. AMLODIPINE BESILATE/PERINDOPRIL ARGININE [Concomitant]
  2. PREGABALIN. [Concomitant]
     Active Substance: PREGABALIN
  3. PRAVASTATIN SODIUM. [Concomitant]
     Active Substance: PRAVASTATIN SODIUM
  4. BISOPROLOL FUMARATE. [Concomitant]
     Active Substance: BISOPROLOL FUMARATE
  5. PARACETAMOL [Concomitant]
     Active Substance: ACETAMINOPHEN
  6. TRAMADOL HYDROCHLORIDE. [Concomitant]
     Active Substance: TRAMADOL HYDROCHLORIDE
  7. IRBESARTAN. [Concomitant]
     Active Substance: IRBESARTAN
  8. RABEPRAZOLE SODIUM. [Concomitant]
     Active Substance: RABEPRAZOLE SODIUM
  9. MIRTAZAPINE. [Concomitant]
     Active Substance: MIRTAZAPINE
  10. BACLOFEN. [Concomitant]
     Active Substance: BACLOFEN
  11. XEOMIN [Suspect]
     Active Substance: INCOBOTULINUMTOXINA
     Indication: MUSCLE SPASTICITY
     Dosage: 1 IN 1 TOTAL (PATIENT^S 11TH INJECTION)
     Route: 030
     Dates: start: 20170907, end: 20170907
  12. XEOMIN [Concomitant]
     Active Substance: INCOBOTULINUMTOXINA
     Indication: MUSCLE SPASTICITY
     Dosage: TREATED WITH BOTULINUM TOXIN (1 IN 1 TOTAL EACH TIME) FOR SEVERAL MONTHS PRIOR TO ADVERSE EVENT.
     Route: 030
  13. METFORMIN HYDROCHLORIDE. [Concomitant]
     Active Substance: METFORMIN HYDROCHLORIDE

REACTIONS (2)
  - Respiratory failure [Recovered/Resolved]
  - Speech disorder [Recovered/Resolved]
